FAERS Safety Report 25251451 (Version 1)
Quarter: 2025Q2

REPORT INFORMATION
  Report Type: Spontaneous
  Country: SN (occurrence: SN)
  Receive Date: 20250429
  Receipt Date: 20250429
  Transmission Date: 20250717
  Serious: Yes (Life-Threatening, Hospitalization, Other)
  Sender: EXELA PHARMA SCIENCES
  Company Number: US-EXELAPHARMA-2025EXLA00053

PATIENT
  Age: 27 Year
  Sex: Female

DRUGS (3)
  1. TRANEXAMIC ACID [Suspect]
     Active Substance: TRANEXAMIC ACID
     Indication: Intermenstrual bleeding
     Route: 042
  2. Packed RBCs [Concomitant]
  3. Isotonic serum [Concomitant]

REACTIONS (3)
  - Drug ineffective for unapproved indication [Unknown]
  - Intermenstrual bleeding [Unknown]
  - Pelvic haematoma [Unknown]
